FAERS Safety Report 7207394-2 (Version None)
Quarter: 2010Q4

REPORT INFORMATION
  Report Type: 
  Country: None (occurrence: None)
  Receive Date: 20101221
  Receipt Date: 20101207
  Transmission Date: 20110411
  Serious: Yes (Hospitalization)
  Sender: FDA-Public Use
  Company Number: JPI-P-012611

PATIENT
  Age: 47 Year
  Sex: Female

DRUGS (3)
  1. XYREM [Suspect]
     Indication: CATAPLEXY
     Dosage: 6 GM (3 GM, 2 IN 1 D), ORAL
     Route: 048
     Dates: start: 20100817, end: 20100928
  2. MODAFINIL [Concomitant]
  3. FLUOXETINE [Concomitant]

REACTIONS (2)
  - ABDOMINAL PAIN [None]
  - INTERVERTEBRAL DISCITIS [None]
